FAERS Safety Report 12207533 (Version 3)
Quarter: 2016Q4

REPORT INFORMATION
  Report Type: Spontaneous
  Country: US (occurrence: US)
  Receive Date: 20160324
  Receipt Date: 20161228
  Transmission Date: 20170207
  Serious: Yes (Other)
  Sender: FDA-Public Use
  Company Number: US-GLAXOSMITHKLINE-US2016GSK037558

PATIENT
  Age: 51 Year
  Sex: Male

DRUGS (2)
  1. TANZEUM [Suspect]
     Active Substance: ALBIGLUTIDE
     Indication: TYPE 2 DIABETES MELLITUS
     Dosage: 30 MG, SINGLE
     Route: 042
     Dates: start: 20160314
  2. TANZEUM [Suspect]
     Active Substance: ALBIGLUTIDE
     Dosage: 50 MG, WE
     Route: 042

REACTIONS (4)
  - Surgery [Unknown]
  - Peripheral swelling [Not Recovered/Not Resolved]
  - Postoperative delirium [Unknown]
  - Device use error [Unknown]

NARRATIVE: CASE EVENT DATE: 201603
